FAERS Safety Report 10009542 (Version 2)
Quarter: 2014Q1

REPORT INFORMATION
  Report Type: Spontaneous
  Country: US (occurrence: US)
  Receive Date: 20140312
  Receipt Date: 20140312
  Transmission Date: 20141002
  Serious: No
  Sender: FDA-Public Use
  Company Number: US-INCYTE CORPORATION-2012IN001784

PATIENT
  Age: 78 Year
  Sex: Female

DRUGS (8)
  1. JAKAFI [Suspect]
     Indication: SPLENOMEGALY
     Dosage: 5 MG, BID
     Route: 048
     Dates: start: 20120912, end: 2012
  2. JAKAFI [Suspect]
     Indication: POLYCYTHAEMIA VERA
     Dosage: 10 MG, BID
     Route: 048
     Dates: start: 2012, end: 20121018
  3. JAKAFI [Suspect]
     Dosage: 5 MG, QD
     Route: 048
     Dates: start: 20121019
  4. PANTOPRAZOLE [Concomitant]
     Dosage: 40 MG, QD
  5. VALIUM [Concomitant]
     Dosage: 5 MG, UNK
  6. CALTRATE WITH VITAMIN D [Concomitant]
  7. TYLENOL [Concomitant]
  8. ASPIRIN [Concomitant]
     Dosage: 81 MG, UNK

REACTIONS (5)
  - Nausea [Not Recovered/Not Resolved]
  - Decreased appetite [Not Recovered/Not Resolved]
  - Headache [Not Recovered/Not Resolved]
  - Dizziness [Not Recovered/Not Resolved]
  - Anaemia [Not Recovered/Not Resolved]
